FAERS Safety Report 20953103 (Version 1)
Quarter: 2022Q2

REPORT INFORMATION
  Report Type: Spontaneous
  Country: GB (occurrence: GB)
  Receive Date: 20220613
  Receipt Date: 20220613
  Transmission Date: 20220721
  Serious: Yes (Hospitalization, Disabling, Other)
  Sender: FDA-Public Use
  Company Number: GB-SA-2020SA305826

PATIENT
  Age: 82 Year
  Sex: Female

DRUGS (5)
  1. DILTIAZEM HYDROCHLORIDE [Suspect]
     Active Substance: DILTIAZEM HYDROCHLORIDE
     Indication: Angina pectoris
     Dosage: SPLIT THE DOSE OF 180MG OVER THREE ADMINISTRATIONS, 08:00, 13:00 AND 22:00
     Route: 048
     Dates: start: 20200819, end: 20200928
  2. ATORVASTATIN [Suspect]
     Active Substance: ATORVASTATIN
     Indication: Product used for unknown indication
     Route: 065
  3. ASPIRIN [Concomitant]
     Active Substance: ASPIRIN
     Indication: Product used for unknown indication
  4. FUROSEMIDE SODIUM [Concomitant]
     Active Substance: FUROSEMIDE SODIUM
     Indication: Product used for unknown indication
  5. LANSOPRAZOLE [Concomitant]
     Active Substance: LANSOPRAZOLE
     Indication: Product used for unknown indication

REACTIONS (11)
  - Decreased appetite [Recovering/Resolving]
  - Pruritus [Recovering/Resolving]
  - Delirium [Unknown]
  - Fatigue [Recovering/Resolving]
  - Hot flush [Recovering/Resolving]
  - Dry mouth [Recovering/Resolving]
  - Nausea [Recovering/Resolving]
  - Thrombocytopenia [Unknown]
  - Abdominal pain upper [Recovering/Resolving]
  - Labelled drug-drug interaction medication error [Unknown]
  - Wrong technique in product usage process [Unknown]

NARRATIVE: CASE EVENT DATE: 20200820
